FAERS Safety Report 16126093 (Version 2)
Quarter: 2019Q2

REPORT INFORMATION
  Report Type: Spontaneous
  Country: JP (occurrence: JP)
  Receive Date: 20190328
  Receipt Date: 20190614
  Transmission Date: 20190711
  Serious: Yes (Other)
  Sender: FDA-Public Use
  Company Number: JP-009507513-1903JPN010891

PATIENT
  Age: 67 Year
  Sex: Male

DRUGS (1)
  1. KEYTRUDA [Suspect]
     Active Substance: PEMBROLIZUMAB
     Indication: LUNG ADENOCARCINOMA STAGE IV
     Dosage: FIRST-LINE THERAPY, 200MG/BODY, EVERY 3 WEEKS
     Route: 041
     Dates: start: 20171206, end: 2018

REACTIONS (1)
  - Haemophagocytic lymphohistiocytosis [Recovered/Resolved]

NARRATIVE: CASE EVENT DATE: 20180220
